FAERS Safety Report 7354896-4 (Version None)
Quarter: 2011Q1

REPORT INFORMATION
  Report Type: 
  Country: None (occurrence: None)
  Receive Date: 20110316
  Receipt Date: 20081017
  Transmission Date: 20110831
  Serious: Yes (Hospitalization, Other)
  Sender: FDA-Public Use
  Company Number: US-BAYER-200836284NA

PATIENT
  Sex: Male
  Weight: 129.71 kg

DRUGS (15)
  1. LEVOXYL [Concomitant]
     Dosage: .75 MG/D, UNK
     Route: 048
  2. HUMULIN [INSULIN HUMAN] [Concomitant]
     Dosage: 30 U, BID
     Route: 058
  3. DOPAMINE [Concomitant]
     Dosage: UNK
     Route: 042
     Dates: start: 20050621, end: 20050621
  4. PROTAMINE SULFATE [Concomitant]
     Dosage: UNK
     Route: 042
     Dates: start: 20050621, end: 20050621
  5. NEURONTIN [Concomitant]
     Dosage: 800 MG, TID
     Route: 048
  6. HEPARIN [Concomitant]
     Dosage: 50000 U, UNK
     Route: 042
     Dates: start: 20050621, end: 20050621
  7. TRASYLOL [Suspect]
     Indication: CORONARY ARTERY BYPASS
     Dosage: 100 CC THEN 25 CC/HR DRIP
     Dates: start: 20050621, end: 20050621
  8. SYNTHROID [Concomitant]
     Dosage: .75 MG/D, UNK
     Route: 048
  9. IMDUR [Concomitant]
     Dosage: 30 MG, QD
     Route: 048
     Dates: start: 20050401
  10. PROTAMINE SULFATE [Concomitant]
     Dosage: UNK, PRN
     Route: 060
     Dates: start: 20050401
  11. MANNITOL [Concomitant]
     Dosage: UNK
     Route: 042
     Dates: start: 20050621, end: 20050621
  12. TRICOR [Concomitant]
     Dosage: 145 MG, QD
     Route: 048
  13. ALLOPURINOL [Concomitant]
     Dosage: 300 MG, QD
     Route: 048
  14. GLIPIZIDE [Concomitant]
     Dosage: 10 MG, QD
     Route: 048
  15. DOBUTAMINE [Concomitant]
     Dosage: UNK
     Route: 042
     Dates: start: 20050621, end: 20050621

REACTIONS (10)
  - MULTI-ORGAN FAILURE [None]
  - UNEVALUABLE EVENT [None]
  - ANHEDONIA [None]
  - RENAL IMPAIRMENT [None]
  - RENAL FAILURE [None]
  - STRESS [None]
  - RENAL INJURY [None]
  - ANXIETY [None]
  - PAIN [None]
  - FEAR [None]
